FAERS Safety Report 10206838 (Version 1)
Quarter: 2014Q2

REPORT INFORMATION
  Report Type: Spontaneous
  Country: GB (occurrence: GB)
  Receive Date: 20140530
  Receipt Date: 20140530
  Transmission Date: 20141212
  Serious: Yes (Hospitalization, Other)
  Sender: FDA-Public Use
  Company Number: GB-PFIZER INC-2014143476

PATIENT
  Age: 49 Year
  Sex: Female

DRUGS (4)
  1. TOLTERODINE TARTRATE [Suspect]
     Dosage: 2 MG, 1X/DAY
     Route: 048
  2. VITAMIN B COMPOUND [Concomitant]
     Dosage: 1 DF, 3X/DAY
     Route: 054
  3. CETIRIZINE [Concomitant]
     Dosage: 10 MG, 1X/DAY
     Route: 048
  4. THIAMINE [Concomitant]
     Dosage: 100 MG, 3X/DAY

REACTIONS (4)
  - Electrocardiogram QT prolonged [Unknown]
  - Haemoglobin decreased [Unknown]
  - Platelet count decreased [Unknown]
  - Fall [Unknown]
